FAERS Safety Report 8967650 (Version 1)
Quarter: 2012Q4

REPORT INFORMATION
  Report Type: Spontaneous
  Country: US (occurrence: None)
  Receive Date: 20121204
  Receipt Date: 20121204
  Transmission Date: 20130627
  Serious: Yes (Hospitalization, Other)
  Sender: FDA-Public Use
  Company Number: 2010AP002035

PATIENT
  Age: 55 Year
  Sex: Male

DRUGS (3)
  1. FLUTICASONE PROPIONATE NASAL [Suspect]
     Indication: RHINITIS MEDICAMENTOSA
     Route: 045
  2. PHENYTOIN [Suspect]
     Indication: SEIZURE
  3. PHENOBARBITAL [Concomitant]

REACTIONS (36)
  - Drug administration error [None]
  - Adrenal insufficiency [None]
  - Withdrawal syndrome [None]
  - Toxicity to various agents [None]
  - Overdose [None]
  - Mental status changes [None]
  - Renal failure acute [None]
  - Hypovolaemia [None]
  - Rhabdomyolysis [None]
  - Gastroenteritis [None]
  - Asthenia [None]
  - Diarrhoea [None]
  - Vomiting [None]
  - Faecal incontinence [None]
  - Urinary incontinence [None]
  - Lethargy [None]
  - Anterograde amnesia [None]
  - Retrograde amnesia [None]
  - Disorientation [None]
  - Mental impairment [None]
  - Hypotonia [None]
  - Haemoglobin decreased [None]
  - White blood cell count decreased [None]
  - Platelet count decreased [None]
  - Haematocrit decreased [None]
  - Blood sodium decreased [None]
  - Blood potassium decreased [None]
  - Encephalomalacia [None]
  - Blood calcium decreased [None]
  - Blood albumin decreased [None]
  - Abdominal pain [None]
  - Abdominal distension [None]
  - Atrial fibrillation [None]
  - Anticonvulsant drug level decreased [None]
  - Encephalopathy [None]
  - Osteopenia [None]
